FAERS Safety Report 7789797-0 (Version None)
Quarter: 2011Q3

REPORT INFORMATION
  Report Type: 
  Country: None (occurrence: None)
  Receive Date: 20110930
  Receipt Date: 20110125
  Transmission Date: 20111222
  Serious: No
  Sender: FDA-Public Use
  Company Number: US-ASTRAZENECA-2011SE04490

PATIENT
  Age: 70 Year
  Sex: Female

DRUGS (9)
  1. METFORMIN HCL [Concomitant]
  2. AVAPRO [Concomitant]
  3. ASPIRIN [Concomitant]
  4. VITAMIN D [Concomitant]
  5. ARIMIDEX [Suspect]
     Indication: BREAST CANCER
     Route: 048
     Dates: start: 20080501
  6. LIPITOR [Concomitant]
  7. GLIMIPRIDE [Concomitant]
  8. CALCIUM CARBONATE [Concomitant]
  9. NORVASC [Concomitant]

REACTIONS (8)
  - JOINT SWELLING [None]
  - ARTHRALGIA [None]
  - CLUMSY CHILD SYNDROME [None]
  - FALL [None]
  - OEDEMA [None]
  - PAIN IN EXTREMITY [None]
  - OEDEMA PERIPHERAL [None]
  - HAIR DISORDER [None]
